FAERS Safety Report 6674462-3 (Version None)
Quarter: 2010Q2

REPORT INFORMATION
  Report Type: 
  Country: None (occurrence: None)
  Receive Date: 20100409
  Receipt Date: 20100407
  Transmission Date: 20101027
  Serious: Yes (Death)
  Sender: FDA-Public Use
  Company Number: PHHY2010US21415

PATIENT
  Sex: Male
  Weight: 99.773 kg

DRUGS (1)
  1. EXJADE [Suspect]
     Indication: LYMPHATIC DISORDER
     Dosage: 1000 MG, QD
     Route: 048
     Dates: start: 20080701

REACTIONS (1)
  - DEATH [None]
